FAERS Safety Report 14180999 (Version 1)
Quarter: 2017Q4

REPORT INFORMATION
  Report Type: Spontaneous
  Country: US (occurrence: US)
  Receive Date: 20171110
  Receipt Date: 20171110
  Transmission Date: 20180321
  Serious: Yes (Disabling)
  Sender: FDA-Public Use
  Company Number: None

PATIENT
  Age: 10 Year
  Sex: Female
  Weight: 33.75 kg

DRUGS (2)
  1. EX-LAX CHOCOLATE SQUARES [Concomitant]
  2. SERTRAILINE ORAL CONCENTRATE [Suspect]
     Active Substance: SERTRALINE HYDROCHLORIDE
     Indication: OBSESSIVE-COMPULSIVE DISORDER
     Dosage: ?          QUANTITY:12.5 ML;?
     Route: 048
     Dates: start: 20170905, end: 20171023

REACTIONS (8)
  - Diarrhoea [None]
  - Educational problem [None]
  - Psychotic disorder [None]
  - Nausea [None]
  - Decreased interest [None]
  - Depression [None]
  - Tachyphrenia [None]
  - Disturbance in attention [None]

NARRATIVE: CASE EVENT DATE: 20171023
